FAERS Safety Report 13985828 (Version 2)
Quarter: 2022Q2

REPORT INFORMATION
  Report Type: Spontaneous
  Country: US (occurrence: US)
  Receive Date: 20170919
  Receipt Date: 20220411
  Transmission Date: 20220721
  Serious: No
  Sender: FDA-Public Use
  Company Number: US-PFIZER INC-2017402377

PATIENT
  Age: 76 Year
  Sex: Female
  Weight: 58.957 kg

DRUGS (1)
  1. PROPOFOL [Suspect]
     Active Substance: PROPOFOL
     Indication: Anaesthesia
     Dosage: UNK
     Dates: start: 201302

REACTIONS (8)
  - Inflammation [Unknown]
  - Gastrointestinal inflammation [Unknown]
  - Gastroenteritis [Unknown]
  - Somnolence [Unknown]
  - Cerebral disorder [Unknown]
  - Bradykinesia [Unknown]
  - Speech disorder [Unknown]
  - Prescribed overdose [Unknown]
